FAERS Safety Report 7431943-2 (Version None)
Quarter: 2011Q2

REPORT INFORMATION
  Report Type: 
  Country: None (occurrence: None)
  Receive Date: 20110422
  Receipt Date: 20110418
  Transmission Date: 20111010
  Serious: Yes (Other)
  Sender: FDA-Public Use
  Company Number: US-PFIZER INC-2011085366

PATIENT
  Sex: Female

DRUGS (1)
  1. LYRICA [Suspect]
     Dosage: 75 MG, 2X/DAY

REACTIONS (6)
  - THINKING ABNORMAL [None]
  - FALL [None]
  - BEDRIDDEN [None]
  - BACK PAIN [None]
  - VISION BLURRED [None]
  - BALANCE DISORDER [None]
